FAERS Safety Report 7837720-2 (Version None)
Quarter: 2011Q4

REPORT INFORMATION
  Report Type: 
  Country: None (occurrence: None)
  Receive Date: 20111024
  Receipt Date: 20111018
  Transmission Date: 20120403
  Serious: Yes (Other)
  Sender: FDA-Public Use
  Company Number: PHEH2011US01195

PATIENT
  Sex: Female
  Weight: 68.027 kg

DRUGS (12)
  1. CYMBALTA [Concomitant]
     Dosage: 20 MG, UNK
  2. PERCOCET [Concomitant]
     Dosage: 5-325 MG, UNK
  3. GILENYA [Suspect]
     Dosage: 0.5 MG, QD
     Route: 048
     Dates: end: 20110825
  4. KLONOPIN [Concomitant]
     Dosage: 0.5 MG, UNK
  5. LYRICA [Concomitant]
     Dosage: 100 MG, UNK
  6. NUVIGIL [Concomitant]
     Dosage: 150 MG, UNK
  7. CELEBREX [Concomitant]
     Dosage: 100 MG, UNK
  8. ASPIRIN [Concomitant]
     Dosage: 81 MG, UNK
  9. VALTREX [Concomitant]
     Dosage: 500 MG, UNK
  10. MIRALAX [Concomitant]
     Dosage: UNK UKN, OT
  11. METHYLPHENIDATE [Suspect]
     Dosage: 10 MG, UNK
     Route: 048
  12. CALCIUM CARBONATE [Concomitant]
     Dosage: 600 DF, UNK

REACTIONS (1)
  - HERPES ZOSTER [None]
